FAERS Safety Report 5646507-0 (Version None)
Quarter: 2008Q1

REPORT INFORMATION
  Report Type: 
  Country: None (occurrence: None)
  Receive Date: 20080228
  Receipt Date: 20080228
  Transmission Date: 20080703
  Serious: Yes (Hospitalization)
  Sender: FDA-Public Use
  Company Number: None

PATIENT
  Sex: Male
  Weight: 63.5036 kg

DRUGS (4)
  1. COMPAZINE [Suspect]
     Indication: NAUSEA
     Dosage: PRIOR TO ADMISSION
  2. COMPAZINE [Suspect]
     Indication: VOMITING
     Dosage: PRIOR TO ADMISSION
  3. RISPERDAL [Suspect]
     Indication: BIPOLAR DISORDER
  4. IMODIUM [Concomitant]

REACTIONS (2)
  - DYSTONIA [None]
  - EYE ROLLING [None]
